FAERS Safety Report 5615709-1 (Version None)
Quarter: 2008Q1

REPORT INFORMATION
  Report Type: 
  Country: None (occurrence: None)
  Receive Date: 20080206
  Receipt Date: 20080122
  Transmission Date: 20080703
  Serious: Yes (Hospitalization)
  Sender: FDA-Public Use
  Company Number: FR-JNJFOC-20080104979

PATIENT
  Sex: Male
  Weight: 67 kg

DRUGS (17)
  1. NIZORAL [Suspect]
     Route: 048
  2. NIZORAL [Suspect]
     Indication: ADRENAL SUPPRESSION
     Route: 048
  3. LYSODREN [Suspect]
     Route: 048
  4. LYSODREN [Suspect]
     Route: 048
  5. LYSODREN [Suspect]
     Route: 048
  6. LYSODREN [Suspect]
     Indication: DRUG USE FOR UNKNOWN INDICATION
     Route: 048
  7. ANAFRANIL [Suspect]
     Indication: DRUG USE FOR UNKNOWN INDICATION
     Route: 048
  8. TRAMADOL HCL [Concomitant]
     Indication: DRUG USE FOR UNKNOWN INDICATION
     Route: 048
  9. PARACETAMOL [Concomitant]
     Indication: DRUG USE FOR UNKNOWN INDICATION
     Route: 048
  10. IMOVANE [Concomitant]
     Route: 065
  11. ATARAX [Concomitant]
     Route: 065
  12. MOTILIUM [Concomitant]
     Route: 065
  13. ACUPAN [Concomitant]
     Route: 065
  14. LOVENOX [Concomitant]
     Route: 065
  15. ALDACTONE [Concomitant]
     Route: 065
  16. NEXIUM [Concomitant]
     Route: 065
  17. ZYMAD [Concomitant]
     Route: 065

REACTIONS (3)
  - CHOLESTASIS [None]
  - EOSINOPHIL COUNT INCREASED [None]
  - TOXIC SKIN ERUPTION [None]
